FAERS Safety Report 6853935-4 (Version None)
Quarter: 2010Q3

REPORT INFORMATION
  Report Type: 
  Country: None (occurrence: None)
  Receive Date: 20100717
  Receipt Date: 20071219
  Transmission Date: 20110219
  Serious: No
  Sender: FDA-Public Use
  Company Number: US-PFIZER INC-2007107524

PATIENT
  Sex: Female
  Weight: 75 kg

DRUGS (5)
  1. CHANTIX [Suspect]
     Indication: SMOKING CESSATION THERAPY
     Dates: start: 20071201
  2. DRUG USED IN DIABETES [Concomitant]
     Indication: DIABETES MELLITUS
  3. NICOTINE [Concomitant]
     Indication: SMOKING CESSATION THERAPY
  4. ACEON [Concomitant]
     Indication: HYPERTENSION
  5. AVALIDE [Concomitant]
     Indication: HYPERTENSION

REACTIONS (4)
  - FIBROMYALGIA [None]
  - INSOMNIA [None]
  - MYALGIA [None]
  - VOMITING [None]
